FAERS Safety Report 8002481-3 (Version None)
Quarter: 2011Q4

REPORT INFORMATION
  Report Type: 
  Country: None (occurrence: None)
  Receive Date: 20111222
  Receipt Date: 20111214
  Transmission Date: 20120403
  Serious: Yes (Hospitalization)
  Sender: FDA-Public Use
  Company Number: US-JNJFOC-20110701391

PATIENT
  Sex: Male
  Weight: 41.6 kg

DRUGS (8)
  1. ELAVIL [Concomitant]
  2. NEXIUM [Concomitant]
  3. REMICADE [Suspect]
     Indication: CROHN'S DISEASE
     Route: 042
     Dates: start: 20100827
  4. PREDNISONE TAB [Concomitant]
  5. MULTIVITAMIN [Concomitant]
  6. REMICADE [Suspect]
     Route: 042
     Dates: start: 20101011
  7. CALCIUM CARBONATE [Concomitant]
  8. ZYRTEC [Concomitant]
     Route: 048

REACTIONS (1)
  - PNEUMONIA PRIMARY ATYPICAL [None]
